FAERS Safety Report 4844877-4 (Version None)
Quarter: 2005Q4

REPORT INFORMATION
  Report Type: 
  Country: None (occurrence: None)
  Receive Date: 20051201
  Receipt Date: 20051201
  Transmission Date: 20060501
  Serious: Yes (Hospitalization, Other)
  Sender: FDA-Public Use
  Company Number: None

PATIENT
  Age: 21 Day
  Sex: Female
  Weight: 2.7216 kg

DRUGS (1)
  1. ERYTHROMYCIN [Suspect]
     Indication: INFECTION
     Dates: start: 19980410, end: 19980417

REACTIONS (2)
  - NEONATAL DISORDER [None]
  - PYLORIC STENOSIS [None]
